FAERS Safety Report 4554848-3 (Version None)
Quarter: 2005Q1

REPORT INFORMATION
  Report Type: 
  Country: None (occurrence: None)
  Receive Date: 20050114
  Receipt Date: 20040524
  Transmission Date: 20050727
  Serious: Yes (Hospitalization)
  Sender: FDA-Public Use
  Company Number: PHBS2004NL06921

PATIENT
  Age: 63 Year
  Sex: Male

DRUGS (7)
  1. RIFAMPICIN (NGX) (RIFAMPICIN) SUSPENSION FOR INFUSION [Suspect]
     Indication: INFECTION
  2. VANCOMYCIN [Suspect]
     Dosage: INTRAVENOUS
     Route: 042
  3. DILTIAZEM [Concomitant]
  4. ATORVASTATIN (ATORVASTATIN) [Concomitant]
  5. ACETAMINOPHEN [Concomitant]
  6. LISINOPRIL [Concomitant]
  7. TEMAZEPAM [Concomitant]

REACTIONS (23)
  - ACUTE GENERALISED EXANTHEMATOUS PUSTULOSIS [None]
  - ADVERSE DRUG REACTION [None]
  - ANURIA [None]
  - BIOPSY SKIN ABNORMAL [None]
  - BLOOD CREATININE INCREASED [None]
  - CHILLS [None]
  - ECZEMA [None]
  - ERYTHEMA MULTIFORME [None]
  - EXANTHEM [None]
  - HYPOTENSION [None]
  - LEUKOCYTOSIS [None]
  - LEUKOPENIA [None]
  - NEUTROPHIL PERCENTAGE INCREASED [None]
  - PYREXIA [None]
  - RASH PRURITIC [None]
  - SEPTIC SHOCK [None]
  - SKIN EXFOLIATION [None]
  - SKIN TEST POSITIVE [None]
  - STEVENS-JOHNSON SYNDROME [None]
  - SUBCORNEAL PUSTULAR DERMATOSIS [None]
  - TACHYCARDIA [None]
  - TOXIC SHOCK SYNDROME STAPHYLOCOCCAL [None]
  - VASCULITIS [None]
